FAERS Safety Report 19531293 (Version 2)
Quarter: 2021Q3

REPORT INFORMATION
  Report Type: Spontaneous
  Country: US (occurrence: US)
  Receive Date: 20210714
  Receipt Date: 20210716
  Transmission Date: 20211014
  Serious: No
  Sender: FDA-Public Use
  Company Number: US-ORGANON-O2107USA000534

PATIENT
  Age: 40 Year
  Sex: Female

DRUGS (4)
  1. GANIRELIX ACETATE INJECTION [Suspect]
     Active Substance: GANIRELIX ACETATE
     Indication: INFERTILITY
     Dosage: STRENGHT: 250MCG/.5ML, 250 MICROGRAM, QD
     Route: 058
     Dates: start: 20210629
  2. ESTRADIOL. [Concomitant]
     Active Substance: ESTRADIOL
  3. FLUCONAZOLE. [Concomitant]
     Active Substance: FLUCONAZOLE
  4. FEROSUL [Concomitant]
     Active Substance: FERROUS SULFATE

REACTIONS (3)
  - Needle issue [Unknown]
  - Product dose omission issue [Unknown]
  - No adverse event [Unknown]

NARRATIVE: CASE EVENT DATE: 20210703
